FAERS Safety Report 21723443 (Version 2)
Quarter: 2022Q4

REPORT INFORMATION
  Report Type: Spontaneous
  Country: CN (occurrence: None)
  Receive Date: 20221213
  Receipt Date: 20221220
  Transmission Date: 20230112
  Serious: Yes (Other)
  Sender: FDA-Public Use
  Company Number: 2022A402554

PATIENT
  Age: 9 Year
  Sex: Female

DRUGS (1)
  1. LOSEC [Suspect]
     Active Substance: OMEPRAZOLE
     Indication: Abdominal discomfort
     Route: 048

REACTIONS (3)
  - Anuria [Unknown]
  - Renal impairment [Unknown]
  - Tubulointerstitial nephritis [Unknown]
